FAERS Safety Report 24714909 (Version 1)
Quarter: 2024Q4

REPORT INFORMATION
  Report Type: Spontaneous
  Country: US (occurrence: US)
  Receive Date: 20241210
  Receipt Date: 20241210
  Transmission Date: 20250115
  Serious: No
  Sender: ROCHE
  Company Number: US-ROCHE-10000147799

PATIENT
  Age: 18 Year
  Sex: Female
  Weight: 63.04 kg

DRUGS (5)
  1. ACTEMRA [Suspect]
     Active Substance: TOCILIZUMAB
     Indication: Rheumatoid arthritis
     Route: 058
     Dates: start: 202206
  2. METHOTREXATE [Concomitant]
     Active Substance: METHOTREXATE
     Indication: Rheumatoid arthritis
     Dosage: (6) 2.5 MG TABLET; STARTED BEFORE ACTEMRA
     Route: 048
  3. MELOXICAM [Concomitant]
     Active Substance: MELOXICAM
     Indication: Rheumatoid arthritis
     Dosage: TAKES AT NIGHT; STARTED BEFORE ACTEMRA
     Route: 048
  4. LORYNA [Concomitant]
     Active Substance: DROSPIRENONE\ETHINYL ESTRADIOL
     Indication: Dysmenorrhoea
     Dosage: DOSE 0.3-0.02 MG; TAKES AT NIGHT; STARTED BEFORE ACTEMRA
     Route: 048
  5. FOLIC ACID [Concomitant]
     Active Substance: FOLIC ACID
     Dosage: TAKES ONE TABLET
     Route: 048

REACTIONS (6)
  - Product dose omission issue [Unknown]
  - Product preparation error [Unknown]
  - Wrong technique in device usage process [Unknown]
  - Injection site haemorrhage [Recovered/Resolved]
  - Anaemia [Recovering/Resolving]
  - Needle issue [Unknown]

NARRATIVE: CASE EVENT DATE: 20241124
